FAERS Safety Report 22536656 (Version 4)
Quarter: 2024Q1

REPORT INFORMATION
  Report Type: Spontaneous
  Country: CN (occurrence: CN)
  Receive Date: 20230608
  Receipt Date: 20240102
  Transmission Date: 20240409
  Serious: Yes (Hospitalization, Other)
  Sender: FDA-Public Use
  Company Number: CN-SUN PHARMACEUTICAL INDUSTRIES LTD-2023R1-393428

PATIENT
  Age: 49 Year
  Sex: Female

DRUGS (10)
  1. CISPLATIN [Suspect]
     Active Substance: CISPLATIN
     Indication: Neoplasm progression
     Dosage: 80 MG/60 MG
     Route: 033
     Dates: start: 202112
  2. CISPLATIN [Suspect]
     Active Substance: CISPLATIN
     Dosage: 50 MILLIGRAM
     Route: 033
  3. DOCETAXEL [Suspect]
     Active Substance: DOCETAXEL\DOCETAXEL ANHYDROUS
     Indication: Neoplasm progression
     Dosage: 80 MILLIGRAM
     Route: 065
     Dates: start: 20200430
  4. DOCETAXEL [Suspect]
     Active Substance: DOCETAXEL\DOCETAXEL ANHYDROUS
     Dosage: 100 MILLIGRAM
     Route: 042
     Dates: start: 202112
  5. DOCETAXEL [Suspect]
     Active Substance: DOCETAXEL\DOCETAXEL ANHYDROUS
     Dosage: 100 MILLIGRAM
     Route: 042
     Dates: start: 202201
  6. DOCETAXEL [Suspect]
     Active Substance: DOCETAXEL\DOCETAXEL ANHYDROUS
     Dosage: 100 MILLIGRAM
     Route: 042
     Dates: start: 202202
  7. OXALIPLATIN [Suspect]
     Active Substance: OXALIPLATIN
     Indication: Neoplasm progression
     Dosage: 130 MILLIGRAM
     Route: 065
     Dates: start: 20200430
  8. LEVOLEUCOVORIN CALCIUM [Suspect]
     Active Substance: LEVOLEUCOVORIN CALCIUM
     Indication: Neoplasm progression
     Dosage: 325 MILLIGRAM
     Route: 065
     Dates: start: 20200430
  9. FLUOROURACIL [Suspect]
     Active Substance: FLUOROURACIL
     Indication: Neoplasm progression
     Dosage: 4000 MILLIGRAM
     Route: 065
     Dates: start: 20200430
  10. LEUCOVORIN [Concomitant]
     Active Substance: LEUCOVORIN\LEUCOVORIN CALCIUM
     Indication: Neoplasm progression
     Dosage: UNK
     Route: 065

REACTIONS (2)
  - Posterior reversible encephalopathy syndrome [Recovering/Resolving]
  - Thrombocytopenia [Recovering/Resolving]
